FAERS Safety Report 21657598 (Version 2)
Quarter: 2023Q1

REPORT INFORMATION
  Report Type: Report from Study
  Country: US (occurrence: US)
  Receive Date: 20221129
  Receipt Date: 20230315
  Transmission Date: 20230417
  Serious: Yes (Other)
  Sender: FDA-Public Use
  Company Number: US-PFIZER INC-202200541796

PATIENT
  Sex: Male
  Weight: 88.4 kg

DRUGS (1)
  1. LYRICA [Suspect]
     Active Substance: PREGABALIN
     Indication: Neuropathy peripheral
     Dosage: UNK UNK, BID
     Route: 065

REACTIONS (5)
  - Neuropathy peripheral [Unknown]
  - Drug dependence [Unknown]
  - Hypoaesthesia [Unknown]
  - Condition aggravated [Unknown]
  - Drug ineffective [Unknown]
